FAERS Safety Report 15617059 (Version 1)
Quarter: 2018Q4

REPORT INFORMATION
  Report Type: Spontaneous
  Country: FR (occurrence: FR)
  Receive Date: 20181114
  Receipt Date: 20181114
  Transmission Date: 20190205
  Serious: Yes (Hospitalization)
  Sender: FDA-Public Use
  Company Number: FR-TEVA-2018-FR-974775

PATIENT
  Age: 67 Year
  Sex: Male
  Weight: 66 kg

DRUGS (5)
  1. ENDOXAN 100 MG, POUDRE POUR SOLUTION INJECTABLE [Suspect]
     Active Substance: CYCLOPHOSPHAMIDE
     Indication: T-CELL LYMPHOMA STAGE IV
     Dosage: 1450 MILLIGRAM DAILY;
     Route: 041
     Dates: start: 20181001, end: 20181001
  2. ETOPOSIDE TEVA 20 MG/ML, SOLUTION ? DILUER POUR PERFUSION [Suspect]
     Active Substance: ETOPOSIDE
     Indication: T-CELL LYMPHOMA STAGE IV
     Dosage: 190 MILLIGRAM DAILY;
     Route: 041
     Dates: start: 20181001, end: 20181003
  3. VINCRISTINE HOSPIRA 2 MG/2 ML, SOLUTION INJECTABLE [Suspect]
     Active Substance: VINCRISTINE SULFATE
     Indication: T-CELL LYMPHOMA STAGE IV
     Dosage: 2 MILLIGRAM DAILY;
     Route: 041
     Dates: start: 20181001, end: 20181001
  4. DOXORUBICINE ACCORD 2 MG/ML, SOLUTION POUR PERFUSION [Suspect]
     Active Substance: DOXORUBICIN HYDROCHLORIDE
     Indication: T-CELL LYMPHOMA STAGE IV
     Dosage: 96 MILLIGRAM DAILY;
     Route: 041
     Dates: start: 20181001, end: 20181001
  5. METHOTREXATE BIODIM [Suspect]
     Active Substance: METHOTREXATE
     Indication: T-CELL LYMPHOMA STAGE IV
     Dosage: 15 MILLIGRAM DAILY;
     Route: 037
     Dates: start: 20181001, end: 20181001

REACTIONS (1)
  - Klebsiella sepsis [Not Recovered/Not Resolved]

NARRATIVE: CASE EVENT DATE: 20181010
